FAERS Safety Report 25923422 (Version 3)
Quarter: 2025Q4

REPORT INFORMATION
  Report Type: Spontaneous
  Country: TR (occurrence: TR)
  Receive Date: 20251015
  Receipt Date: 20251121
  Transmission Date: 20260117
  Serious: Yes (Life-Threatening, Hospitalization)
  Sender: ANI
  Company Number: None

PATIENT
  Age: 45 Year
  Sex: Female
  Weight: 99 kg

DRUGS (5)
  1. FLUVOXAMINE MALEATE [Suspect]
     Active Substance: FLUVOXAMINE MALEATE
     Indication: Obsessive-compulsive disorder
     Route: 048
     Dates: start: 20250908, end: 20250920
  2. ABILIFY [Concomitant]
     Active Substance: ARIPIPRAZOLE
     Indication: Obsessive-compulsive disorder
     Route: 048
     Dates: end: 20250918
  3. LITHIUM CARBONATE [Concomitant]
     Active Substance: LITHIUM CARBONATE
     Indication: Obsessive-compulsive disorder
     Route: 048
     Dates: start: 20250911, end: 20250920
  4. HALOPERIDOL [Concomitant]
     Active Substance: HALOPERIDOL
     Indication: Obsessive-compulsive disorder
     Dosage: 5 DROPS
     Route: 048
     Dates: start: 20250917, end: 20250920
  5. ZESTAT [Concomitant]
     Indication: Obsessive-compulsive disorder
     Route: 048
     Dates: start: 20250909, end: 20250920

REACTIONS (5)
  - Aspartate aminotransferase increased [Recovered/Resolved]
  - Bilirubin conjugated increased [Recovered/Resolved]
  - Blood fibrinogen increased [Recovered/Resolved]
  - Blood bilirubin unconjugated increased [Recovered/Resolved]
  - Alanine aminotransferase increased [Recovered/Resolved]

NARRATIVE: CASE EVENT DATE: 20250918
